FAERS Safety Report 4438763-1 (Version None)
Quarter: 2004Q3

REPORT INFORMATION
  Report Type: 
  Country: None (occurrence: None)
  Receive Date: 20040901
  Receipt Date: 20040803
  Transmission Date: 20050211
  Serious: Yes (Hospitalization)
  Sender: FDA-Public Use
  Company Number: FR-BRISTOL-MYERS SQUIBB COMPANY-12660890

PATIENT
  Age: 64 Year
  Sex: Female

DRUGS (3)
  1. COUMADIN [Suspect]
     Dosage: 2-MG TAB;START 1 TAB DAYS 1 + 2;THEN 1 + 1/2 TABS-DAY 3. STOPPED 2/27/04; RESTARTED 3/27/04.
     Route: 048
     Dates: start: 20030116
  2. SOTALEX TABS 80 MG [Suspect]
     Indication: ARRHYTHMIA
     Route: 048
     Dates: start: 20030901
  3. FLECAINE [Concomitant]

REACTIONS (4)
  - DIVERTICULITIS [None]
  - INTERNATIONAL NORMALISED RATIO DECREASED [None]
  - INTERNATIONAL NORMALISED RATIO INCREASED [None]
  - INTRA-ABDOMINAL HAEMORRHAGE [None]
